FAERS Safety Report 6640433-6 (Version None)
Quarter: 2010Q1

REPORT INFORMATION
  Report Type: 
  Country: None (occurrence: None)
  Receive Date: 20100318
  Receipt Date: 20100308
  Transmission Date: 20100710
  Serious: Yes (Other)
  Sender: FDA-Public Use
  Company Number: US-PFIZER INC-2010030533

PATIENT
  Sex: Female

DRUGS (1)
  1. ESTROPIPATE [Suspect]
     Dosage: UNK

REACTIONS (1)
  - HYPERSENSITIVITY [None]
